FAERS Safety Report 23725420 (Version 1)
Quarter: 2024Q2

REPORT INFORMATION
  Report Type: Spontaneous
  Country: US (occurrence: US)
  Receive Date: 20240410
  Receipt Date: 20240410
  Transmission Date: 20240716
  Serious: No
  Sender: FDA-Public Use
  Company Number: US-ELI_LILLY_AND_COMPANY-US202404005142

PATIENT
  Age: 79 Year
  Sex: Female

DRUGS (2)
  1. VERZENIO [Suspect]
     Active Substance: ABEMACICLIB
     Indication: Breast cancer
     Dosage: 100 MG, DAILY
     Route: 065
     Dates: start: 20231127
  2. VERZENIO [Suspect]
     Active Substance: ABEMACICLIB
     Dosage: 100 MG, OTHER (TWO WEEKS ON)
     Route: 065
     Dates: start: 20231127

REACTIONS (3)
  - Chills [Unknown]
  - Fatigue [Unknown]
  - Diarrhoea [Unknown]
